FAERS Safety Report 20612876 (Version 1)
Quarter: 2022Q1

REPORT INFORMATION
  Report Type: Spontaneous
  Country: US (occurrence: US)
  Receive Date: 20220318
  Receipt Date: 20220318
  Transmission Date: 20220423
  Serious: No
  Sender: FDA-Public Use
  Company Number: US-GILEAD-2022-0573848

PATIENT
  Sex: Male

DRUGS (1)
  1. TRODELVY [Suspect]
     Active Substance: SACITUZUMAB GOVITECAN-HZIY
     Indication: Bladder cancer
     Dosage: UNK
     Route: 065
     Dates: start: 20220124, end: 20220221

REACTIONS (2)
  - Hospice care [Recovered/Resolved]
  - Discontinued product administered [Recovered/Resolved]
